FAERS Safety Report 17268157 (Version 1)
Quarter: 2020Q1

REPORT INFORMATION
  Report Type: Spontaneous
  Country: US (occurrence: US)
  Receive Date: 20200114
  Receipt Date: 20200114
  Transmission Date: 20200409
  Serious: Yes (Death, Hospitalization)
  Sender: FDA-Public Use
  Company Number: US-BAYER-2020-003258

PATIENT
  Age: 32 Year
  Sex: Male

DRUGS (6)
  1. VALPROIC ACID. [Suspect]
     Active Substance: VALPROIC ACID
  2. SERTRALINE [Suspect]
     Active Substance: SERTRALINE HYDROCHLORIDE
  3. PARACETAMOL [Suspect]
     Active Substance: ACETAMINOPHEN
     Route: 048
  4. ACETYLSALICYLIC ACID [Suspect]
     Active Substance: ASPIRIN
     Route: 048
  5. ALCOHOL. [Suspect]
     Active Substance: ALCOHOL
  6. QUETIAPINE. [Suspect]
     Active Substance: QUETIAPINE

REACTIONS (1)
  - Toxicity to various agents [Fatal]
